FAERS Safety Report 14096550 (Version 1)
Quarter: 2017Q4

REPORT INFORMATION
  Report Type: Spontaneous
  Country: GB (occurrence: GB)
  Receive Date: 20171017
  Receipt Date: 20171017
  Transmission Date: 20180321
  Serious: Yes (Other)
  Sender: FDA-Public Use
  Company Number: GB-AMGEN-GBRSP2017122476

PATIENT
  Age: 17 Year
  Sex: Female
  Weight: 57 kg

DRUGS (3)
  1. FOLIC ACID. [Concomitant]
     Active Substance: FOLIC ACID
     Dosage: 5 MG, UNK
     Route: 048
     Dates: start: 20170706
  2. ENBREL [Suspect]
     Active Substance: ETANERCEPT
     Indication: JUVENILE IDIOPATHIC ARTHRITIS
     Dosage: 25 MG, WEEKLY
     Route: 058
     Dates: start: 20150310, end: 20170808
  3. FERROUS FUMARATE [Concomitant]
     Active Substance: FERROUS FUMARATE
     Dosage: 322 MG, UNK
     Route: 048
     Dates: start: 20170804

REACTIONS (13)
  - Red blood cell analysis abnormal [Unknown]
  - Pyrexia [Not Recovered/Not Resolved]
  - Fatigue [Unknown]
  - Platelet count increased [Unknown]
  - White blood cell count increased [Unknown]
  - Lymphadenopathy [Not Recovered/Not Resolved]
  - Oropharyngeal pain [Unknown]
  - Mouth ulceration [Not Recovered/Not Resolved]
  - Epstein-Barr virus antibody positive [Unknown]
  - Swelling face [Not Recovered/Not Resolved]
  - Blood immunoglobulin A increased [Unknown]
  - Blood albumin decreased [Unknown]
  - Blood folate abnormal [Unknown]

NARRATIVE: CASE EVENT DATE: 2017
